FAERS Safety Report 7337802-8 (Version None)
Quarter: 2011Q1

REPORT INFORMATION
  Report Type: 
  Country: None (occurrence: None)
  Receive Date: 20110224
  Receipt Date: 20110209
  Transmission Date: 20110831
  Serious: Yes (Other)
  Sender: FDA-Public Use
  Company Number: 2011000714

PATIENT
  Age: 53 Year
  Sex: Female

DRUGS (5)
  1. AVELOX [Concomitant]
  2. PANTOLOC (PANTOPAZOLE) [Concomitant]
  3. NAPROXEN [Concomitant]
  4. LYRICA [Concomitant]
  5. TARCEVA [Suspect]
     Indication: LUNG NEOPLASM MALIGNANT
     Dosage: (150 MG,1 X PER DAY), ORAL
     Route: 048
     Dates: start: 20110125

REACTIONS (3)
  - DRY SKIN [None]
  - SYNOVIAL CYST [None]
  - RASH [None]
